FAERS Safety Report 5579203-9 (Version None)
Quarter: 2008Q1

REPORT INFORMATION
  Report Type: 
  Country: None (occurrence: None)
  Receive Date: 20080102
  Receipt Date: 20071227
  Transmission Date: 20080703
  Serious: Yes (Other)
  Sender: FDA-Public Use
  Company Number: B0500860A

PATIENT
  Age: 12 Year
  Sex: Male

DRUGS (1)
  1. FLIXOTIDE [Suspect]
     Indication: ASTHMA
     Route: 065

REACTIONS (5)
  - ADRENAL SUPPRESSION [None]
  - ASTHMA [None]
  - BACK PAIN [None]
  - BRONCHOPULMONARY ASPERGILLOSIS ALLERGIC [None]
  - COUGH [None]
